FAERS Safety Report 20661027 (Version 14)
Quarter: 2023Q2

REPORT INFORMATION
  Report Type: Report from Study
  Country: CO (occurrence: CO)
  Receive Date: 20220331
  Receipt Date: 20230509
  Transmission Date: 20230721
  Serious: Yes (Hospitalization, Other)
  Sender: FDA-Public Use
  Company Number: CO-002147023-NVSC2022CO065974

PATIENT

DRUGS (16)
  1. RUXOLITINIB [Suspect]
     Active Substance: RUXOLITINIB
     Indication: Polycythaemia vera
     Dosage: UNK
     Route: 048
     Dates: start: 20151115
  2. RUXOLITINIB [Suspect]
     Active Substance: RUXOLITINIB
     Dosage: 10 MG, Q12H
     Route: 048
  3. RUXOLITINIB [Suspect]
     Active Substance: RUXOLITINIB
     Dosage: 5 MG, Q12H
     Route: 048
  4. RUXOLITINIB [Suspect]
     Active Substance: RUXOLITINIB
     Dosage: UNK, Q12H (SINCE 4 YEARS AGO)
     Route: 048
     Dates: end: 202204
  5. RUXOLITINIB [Suspect]
     Active Substance: RUXOLITINIB
     Dosage: UNK, Q12H
     Route: 048
  6. RUXOLITINIB [Suspect]
     Active Substance: RUXOLITINIB
     Dosage: 5 MG
     Route: 048
     Dates: start: 20220727
  7. RUXOLITINIB [Suspect]
     Active Substance: RUXOLITINIB
     Dosage: UNK
     Route: 048
  8. RUXOLITINIB [Suspect]
     Active Substance: RUXOLITINIB
     Dosage: UNK, BID
     Route: 048
  9. RUXOLITINIB [Suspect]
     Active Substance: RUXOLITINIB
     Dosage: UNK, BID
     Route: 048
  10. RUXOLITINIB [Suspect]
     Active Substance: RUXOLITINIB
     Dosage: 15 MG (60 TABLETS) (TWICE A DAY/ ONE IN THE MORNING AND ONE IN THE AFTERNOON)
     Route: 048
  11. RUXOLITINIB [Suspect]
     Active Substance: RUXOLITINIB
     Dosage: 10 MG
     Route: 065
  12. RUXOLITINIB [Suspect]
     Active Substance: RUXOLITINIB
     Dosage: 30 MG, QD
     Route: 048
  13. RUXOLITINIB [Suspect]
     Active Substance: RUXOLITINIB
     Dosage: 20 MG, Q12H (40 MG, QD) (60 TABLETS)
     Route: 065
     Dates: start: 20230308
  14. RUXOLITINIB [Suspect]
     Active Substance: RUXOLITINIB
     Dosage: 20 MG, BID (TWICE DAILY)
     Route: 048
  15. RUXOLITINIB [Suspect]
     Active Substance: RUXOLITINIB
     Dosage: UNK
     Route: 048
  16. LEVOTHYROXINE [Concomitant]
     Active Substance: LEVOTHYROXINE
     Indication: Hypothyroidism
     Dosage: 50 MG, QD (SINCE 10 YEARS AGO)
     Route: 048

REACTIONS (14)
  - Feeling abnormal [Unknown]
  - Cardiac failure [Unknown]
  - Platelet count abnormal [Unknown]
  - Infarction [Unknown]
  - Investigation abnormal [Unknown]
  - Wrong technique in product usage process [Unknown]
  - Inappropriate schedule of product administration [Unknown]
  - Platelet count increased [Unknown]
  - Polycythaemia vera [Unknown]
  - Malignant neoplasm progression [Unknown]
  - Gait disturbance [Unknown]
  - Fatigue [Unknown]
  - Illness [Unknown]
  - Product availability issue [Unknown]
